FAERS Safety Report 9220575 (Version 3)
Quarter: 2013Q2

REPORT INFORMATION
  Report Type: Spontaneous
  Country: JP (occurrence: JP)
  Receive Date: 20130409
  Receipt Date: 20130506
  Transmission Date: 20140414
  Serious: Yes (Life-Threatening)
  Sender: FDA-Public Use
  Company Number: JP-BAYER-2013-044838

PATIENT
  Age: 75 Year
  Sex: Male

DRUGS (14)
  1. IOPROMIDE 300 [Suspect]
     Indication: MALIGNANT MELANOMA
     Dosage: 100 ML, UNK
     Dates: start: 20130404
  2. VOGLIBOSE [Concomitant]
     Indication: DIABETES MELLITUS
     Dosage: 0.3 MG, TID
     Dates: end: 201304
  3. MITIGLINIDE [Concomitant]
     Indication: DIABETES MELLITUS
     Dosage: 10 MG, TID
     Dates: end: 201304
  4. GLIMEPIRIDE [Concomitant]
     Indication: DIABETES MELLITUS
     Dosage: 3 MG, BID
     Dates: end: 201304
  5. ALLOPURINOL [Concomitant]
     Indication: TREMOR
     Dosage: DAILY DOSE 50 MG
     Dates: end: 201304
  6. FUROSEMIDE [Concomitant]
     Indication: CARDIAC FAILURE
     Dosage: DAILY DOSE 70 MG
     Dates: end: 201304
  7. METFORMIN HYDROCHLORIDE [Concomitant]
     Indication: DIABETES MELLITUS
     Dosage: 50 MG, TID
     Dates: end: 201304
  8. INSULIN ASPART [Concomitant]
     Indication: DIABETES MELLITUS
     Dosage: UNK
  9. INSULIN GLARGINE [Concomitant]
     Indication: DIABETES MELLITUS
     Dosage: UNK
  10. DACARBAZINE [Concomitant]
     Indication: MALIGNANT MELANOMA
     Dosage: UNK
     Dates: start: 20130402, end: 20130404
  11. CHLORPROMAZINE HYDROCHLORIDE [Concomitant]
     Indication: HICCUPS
     Dosage: 50 MG, TID
     Dates: start: 20130404, end: 201304
  12. NIMUSTINE HYDROCHLORIDE [Concomitant]
     Indication: MALIGNANT MELANOMA
     Dosage: 100MG/DAY
     Dates: start: 20130402
  13. CISPLATIN [Concomitant]
     Indication: MALIGNANT MELANOMA
     Dosage: 140MG/DAY
     Dates: start: 20130401
  14. TAMOXIFEN [Concomitant]
     Indication: MALIGNANT MELANOMA
     Dosage: 10 MG, BID
     Dates: start: 20130401, end: 20130404

REACTIONS (5)
  - Convulsion [Recovered/Resolved]
  - Respiratory arrest [Recovered/Resolved]
  - Aspartate aminotransferase increased [Recovered/Resolved]
  - Blood lactate dehydrogenase increased [Recovered/Resolved]
  - Blood creatine phosphokinase MB increased [Unknown]
